FAERS Safety Report 8756233 (Version 3)
Quarter: 2012Q4

REPORT INFORMATION
  Report Type: Spontaneous
  Country: US (occurrence: None)
  Receive Date: 20120816
  Receipt Date: 20120906
  Transmission Date: 20130627
  Serious: Yes (Hospitalization)
  Sender: FDA-Public Use
  Company Number: 2012SGN00343

PATIENT
  Age: 28 Year
  Sex: Male

DRUGS (4)
  1. BRENTUXIMAB VEDOTIN [Suspect]
     Indication: HODGKIN^S LYMPHOMA
     Route: 042
     Dates: start: 20120524, end: 20120705
  2. IFOSFAMIDE [Suspect]
     Indication: HODGKIN^S LYMPHOMA
     Dosage: qcycle
     Route: 042
     Dates: start: 20120720, end: 20120722
  3. CARBOPLATIN [Suspect]
     Indication: HODGKIN^S LYMPHOMA
     Dosage: qcycle
     Route: 042
     Dates: start: 20120720, end: 20120722
  4. ETOPOSIDE [Suspect]
     Indication: HODGKIN^S LYMPHOMA
     Dosage: qccyle
     Route: 042
     Dates: start: 20120720, end: 20120722

REACTIONS (1)
  - Febrile neutropenia [None]
